FAERS Safety Report 12077011 (Version 1)
Quarter: 2016Q1

REPORT INFORMATION
  Report Type: Report from Study
  Country: US (occurrence: US)
  Receive Date: 20160215
  Receipt Date: 20160215
  Transmission Date: 20160526
  Serious: Yes (Hospitalization, Other)
  Sender: FDA-Public Use
  Company Number: US-BAXTER-2016BAX007166

PATIENT
  Age: 11 Year
  Sex: Female
  Weight: 37 kg

DRUGS (6)
  1. CRIZOTINIB [Suspect]
     Active Substance: CRIZOTINIB
     Dosage: COURSE 2
     Route: 065
     Dates: end: 20151202
  2. CYCLOPHOSPHAMIDE FOR INJECTION, USP [Suspect]
     Active Substance: CYCLOPHOSPHAMIDE
     Dosage: COURSE 2
     Route: 065
     Dates: end: 20151121
  3. TOPOTECAN [Suspect]
     Active Substance: TOPOTECAN\TOPOTECAN HYDROCHLORIDE
     Indication: NEUROBLASTOMA
     Dosage: COURSE 1
     Route: 065
     Dates: start: 20151027
  4. TOPOTECAN [Suspect]
     Active Substance: TOPOTECAN\TOPOTECAN HYDROCHLORIDE
     Dosage: COURSE 2
     Route: 065
     Dates: end: 20151121
  5. CRIZOTINIB [Suspect]
     Active Substance: CRIZOTINIB
     Indication: NEUROBLASTOMA
     Dosage: COURSE 1
     Route: 065
     Dates: start: 20151027
  6. CYCLOPHOSPHAMIDE FOR INJECTION, USP [Suspect]
     Active Substance: CYCLOPHOSPHAMIDE
     Indication: NEUROBLASTOMA
     Dosage: COURSE 1
     Route: 065
     Dates: start: 20151027

REACTIONS (6)
  - Pyrexia [Recovered/Resolved]
  - Clostridium difficile infection [Unknown]
  - Oesophagitis [Recovered/Resolved]
  - Oesophageal infection [Recovering/Resolving]
  - Neutropenia [Not Recovered/Not Resolved]
  - Lung infection [Recovering/Resolving]

NARRATIVE: CASE EVENT DATE: 20151127
